FAERS Safety Report 11076059 (Version 2)
Quarter: 2015Q2

REPORT INFORMATION
  Report Type: Report from Study
  Country: CA (occurrence: CA)
  Receive Date: 20150429
  Receipt Date: 20150513
  Transmission Date: 20150821
  Serious: Yes (Other)
  Sender: FDA-Public Use
  Company Number: CA-JNJFOC-20150417524

PATIENT
  Age: 36 Year
  Sex: Female
  Weight: 89.36 kg

DRUGS (4)
  1. SIMPONI [Suspect]
     Active Substance: GOLIMUMAB
     Indication: RHEUMATOID ARTHRITIS
     Route: 058
     Dates: start: 20150123
  2. CORTEF [Concomitant]
     Active Substance: HYDROCORTISONE
     Route: 065
  3. METHOTREXATE [Concomitant]
     Active Substance: METHOTREXATE
     Route: 065
  4. WELLBUTRIN [Concomitant]
     Active Substance: BUPROPION HYDROCHLORIDE
     Route: 065

REACTIONS (9)
  - Clostridium difficile infection [Unknown]
  - Angina pectoris [Unknown]
  - Fatigue [Unknown]
  - Inappropriate schedule of drug administration [Unknown]
  - Incorrect dose administered [Unknown]
  - Nausea [Unknown]
  - Headache [Unknown]
  - Influenza [Unknown]
  - Feeling drunk [Unknown]

NARRATIVE: CASE EVENT DATE: 201501
